FAERS Safety Report 4636680-5 (Version None)
Quarter: 2005Q2

REPORT INFORMATION
  Report Type: 
  Country: None (occurrence: None)
  Receive Date: 20050414
  Receipt Date: 20050405
  Transmission Date: 20051028
  Serious: Yes (Hospitalization, Other)
  Sender: FDA-Public Use
  Company Number: F1-2005-003882

PATIENT
  Sex: Female
  Weight: 2.6 kg

DRUGS (1)
  1. MIRENA [Suspect]
     Indication: CONTRACEPTION
     Dosage: 20 UG/DAY, CONT
     Dates: start: 19991001, end: 20040524

REACTIONS (6)
  - BLOOD BILIRUBIN INCREASED [None]
  - CAESAREAN SECTION [None]
  - DRUG EXPOSURE DURING PREGNANCY [None]
  - NEONATAL DISORDER [None]
  - PREGNANCY WITH CONTRACEPTIVE DEVICE [None]
  - PREMATURE BABY [None]
